FAERS Safety Report 23573943 (Version 6)
Quarter: 2024Q2

REPORT INFORMATION
  Report Type: Report from Study
  Country: KR (occurrence: KR)
  Receive Date: 20240228
  Receipt Date: 20240527
  Transmission Date: 20240716
  Serious: Yes (Other)
  Sender: FDA-Public Use
  Company Number: KR-TAKEDA-2024TUS017498

PATIENT
  Sex: Female

DRUGS (20)
  1. BRIGATINIB [Suspect]
     Active Substance: BRIGATINIB
     Indication: Non-small cell lung cancer
     Dosage: 90 MILLIGRAM, QD
     Route: 048
     Dates: start: 20211014, end: 20211020
  2. BRIGATINIB [Suspect]
     Active Substance: BRIGATINIB
     Dosage: 180 MILLIGRAM, QD
     Route: 048
     Dates: start: 20211021, end: 20211103
  3. BRIGATINIB [Suspect]
     Active Substance: BRIGATINIB
     Dosage: 90 MILLIGRAM, QD
     Route: 048
     Dates: start: 20211104, end: 20211117
  4. BRIGATINIB [Suspect]
     Active Substance: BRIGATINIB
     Dosage: 90 MILLIGRAM, QD
     Route: 048
     Dates: start: 20211122, end: 20211212
  5. BRIGATINIB [Suspect]
     Active Substance: BRIGATINIB
     Dosage: 90 MILLIGRAM, QD
     Route: 048
     Dates: start: 20211222
  6. BISOPROLOL FUMARATE [Concomitant]
     Active Substance: BISOPROLOL FUMARATE
     Indication: Hypertension
     Dosage: 5 MILLIGRAM
     Route: 048
     Dates: start: 20230102
  7. HYDROCORTISONE [Concomitant]
     Active Substance: HYDROCORTISONE
     Indication: Hypertension
     Dosage: 10 MILLIGRAM
     Route: 048
     Dates: start: 20230130
  8. MEGACE F [Concomitant]
     Indication: Decreased appetite
     Dosage: 150 MILLILITER
     Route: 048
     Dates: start: 20230329, end: 20230427
  9. TROMVIX [Concomitant]
     Indication: Angina pectoris
     Dosage: 75 MILLIGRAM
     Route: 048
     Dates: start: 20220411, end: 20230514
  10. ASPIRIN [Concomitant]
     Active Substance: ASPIRIN
     Indication: Thrombosis prophylaxis
     Dosage: 100 MILLIGRAM
     Route: 048
     Dates: start: 20220123, end: 20230806
  11. NIFERON [Concomitant]
     Indication: Angina pectoris
     Dosage: 40 MILLIGRAM
     Route: 048
     Dates: start: 20230102
  12. Mucosta sr [Concomitant]
     Indication: Gastritis prophylaxis
     Dosage: 150 MILLIGRAM
     Route: 048
     Dates: start: 20230130, end: 20230806
  13. RABIET [Concomitant]
     Indication: Gastritis prophylaxis
     Dosage: 10 MILLIGRAM
     Route: 048
     Dates: start: 20220411
  14. EZETIMIBE\ROSUVASTATIN [Concomitant]
     Active Substance: EZETIMIBE\ROSUVASTATIN
     Indication: Hyperlipidaemia
     Dosage: 5 MILLIGRAM
     Route: 048
     Dates: start: 20220123
  15. ALDACTONE [Concomitant]
     Active Substance: SPIRONOLACTONE
     Indication: Hypertension
     Dosage: 1750 MILLIGRAM
     Route: 048
     Dates: start: 20230306, end: 20230514
  16. ALDACTONE [Concomitant]
     Active Substance: SPIRONOLACTONE
     Dosage: 2100 MILLIGRAM
     Route: 048
     Dates: start: 20230515, end: 20230805
  17. Pritor [Concomitant]
     Indication: Hypertension
     Dosage: 80 MILLIGRAM
     Route: 048
     Dates: start: 20220704
  18. Bentive [Concomitant]
     Indication: Vitamin supplementation
     Dosage: 300 MILLIGRAM
     Route: 048
     Dates: start: 20211014
  19. CLOPIDOGREL BISULFATE [Concomitant]
     Active Substance: CLOPIDOGREL BISULFATE
     Indication: Angina pectoris
     Dosage: 75 MILLIGRAM
     Route: 048
     Dates: start: 20230515
  20. GLUCOPHAGE [Concomitant]
     Active Substance: METFORMIN HYDROCHLORIDE
     Indication: Diabetes mellitus
     Dosage: 500 MILLIGRAM
     Route: 048
     Dates: start: 20230515, end: 20230807

REACTIONS (1)
  - Diabetes mellitus [Recovering/Resolving]

NARRATIVE: CASE EVENT DATE: 20230501
